FAERS Safety Report 6174522-X (Version None)
Quarter: 2009Q2

REPORT INFORMATION
  Report Type: 
  Country: None (occurrence: None)
  Receive Date: 20090430
  Receipt Date: 20080709
  Transmission Date: 20091009
  Serious: No
  Sender: FDA-Public Use
  Company Number: US-ASTRAZENECA-2008UW13811

PATIENT
  Age: 72 Year
  Sex: Female
  Weight: 54.9 kg

DRUGS (9)
  1. NEXIUM [Suspect]
     Indication: GASTROOESOPHAGEAL REFLUX DISEASE
     Route: 048
  2. NEXIUM [Suspect]
     Indication: HIATUS HERNIA
     Route: 048
  3. NEXIUM [Suspect]
     Indication: OESOPHAGITIS
     Route: 048
  4. NEXIUM [Suspect]
     Route: 048
     Dates: start: 20080601
  5. NEXIUM [Suspect]
     Route: 048
     Dates: start: 20080601
  6. NEXIUM [Suspect]
     Route: 048
     Dates: start: 20080601
  7. FORTEO [Concomitant]
     Indication: OSTEOPOROSIS
     Dates: start: 20071101
  8. FORTEO [Concomitant]
     Indication: OSTEOPENIA
     Dates: start: 20071101
  9. CALCIUM CITRATE W/ VITAMIN D [Concomitant]
     Dosage: 1000/800 MG
     Dates: start: 20071101

REACTIONS (4)
  - HUNGER [None]
  - NASAL DISCOMFORT [None]
  - THROAT IRRITATION [None]
  - WEIGHT DECREASED [None]
